FAERS Safety Report 14416922 (Version 1)
Quarter: 2018Q1

REPORT INFORMATION
  Report Type: Spontaneous
  Country: US (occurrence: US)
  Receive Date: 20180122
  Receipt Date: 20180122
  Transmission Date: 20180509
  Serious: No
  Sender: FDA-Public Use
  Company Number: US-PFIZER INC-2018022811

PATIENT
  Age: 63 Year
  Sex: Female
  Weight: 64.1 kg

DRUGS (1)
  1. BUPIVACAINE HCL [Suspect]
     Active Substance: BUPIVACAINE HYDROCHLORIDE
     Indication: ANAESTHESIA
     Dosage: 7.5 MG, UNK (8.25 % DEXTROSE)
     Route: 037
     Dates: start: 20180104, end: 20180104

REACTIONS (5)
  - Drug ineffective [Recovered/Resolved]
  - Blood pressure increased [Unknown]
  - Respiratory rate increased [Unknown]
  - Heart rate increased [Unknown]
  - Pain [Unknown]

NARRATIVE: CASE EVENT DATE: 20180104
